FAERS Safety Report 25504955 (Version 2)
Quarter: 2025Q3

REPORT INFORMATION
  Report Type: Report from Study
  Country: US (occurrence: US)
  Receive Date: 20250702
  Receipt Date: 20250829
  Transmission Date: 20251021
  Serious: Yes (Other)
  Sender: SUNOVION
  Company Number: US-SMPA-2025SPA008412

PATIENT
  Age: 80 Year
  Sex: Male

DRUGS (4)
  1. ORGOVYX [Suspect]
     Active Substance: RELUGOLIX
     Indication: Prostate cancer
     Route: 048
  2. ORGOVYX [Suspect]
     Active Substance: RELUGOLIX
     Route: 048
  3. XARELTO [Concomitant]
     Active Substance: RIVAROXABAN
  4. ASPIRIN [Concomitant]
     Active Substance: ASPIRIN

REACTIONS (2)
  - Cardiac device implantation [Unknown]
  - Libido decreased [Unknown]

NARRATIVE: CASE EVENT DATE: 20250501
